FAERS Safety Report 7612016-2 (Version None)
Quarter: 2011Q3

REPORT INFORMATION
  Report Type: 
  Country: None (occurrence: None)
  Receive Date: 20110715
  Receipt Date: 20110701
  Transmission Date: 20111222
  Serious: Yes (Other)
  Sender: FDA-Public Use
  Company Number: US-AMGEN-USASP2011033756

PATIENT
  Sex: Female

DRUGS (1)
  1. ENBREL [Suspect]
     Indication: RHEUMATOID ARTHRITIS
     Dosage: 25 MG, 2 TIMES/WK
     Dates: start: 20100826, end: 20110501

REACTIONS (5)
  - INCORRECT STORAGE OF DRUG [None]
  - ABASIA [None]
  - THROAT TIGHTNESS [None]
  - INFECTED SKIN ULCER [None]
  - BURNING SENSATION [None]
